FAERS Safety Report 7957389-6 (Version None)
Quarter: 2011Q4

REPORT INFORMATION
  Report Type: 
  Country: None (occurrence: None)
  Receive Date: 20111205
  Receipt Date: 20111122
  Transmission Date: 20120403
  Serious: Yes (Hospitalization, Disabling, Other)
  Sender: FDA-Public Use
  Company Number: US-MERCK-1103USA02688

PATIENT
  Age: 59 Year
  Sex: Female
  Weight: 68 kg

DRUGS (7)
  1. ARTHROTEC [Concomitant]
     Indication: OSTEOARTHRITIS
     Route: 065
     Dates: start: 20000101
  2. FOSAMAX [Suspect]
     Route: 048
     Dates: start: 20060701, end: 20071201
  3. SYNTHROID [Concomitant]
     Indication: HYPOTHYROIDISM
     Route: 065
     Dates: start: 19650101
  4. ALENDRONATE SODIUM [Suspect]
     Indication: OSTEOPOROSIS
     Route: 048
     Dates: start: 20080301, end: 20090701
  5. FOSAMAX [Suspect]
     Route: 048
     Dates: start: 20060401, end: 20060601
  6. ACTONEL [Suspect]
     Indication: OSTEOPOROSIS
     Route: 048
     Dates: start: 20090801, end: 20091101
  7. FOSAMAX [Suspect]
     Indication: OSTEOPOROSIS
     Route: 048
     Dates: start: 20020101, end: 20051201

REACTIONS (25)
  - OSTEONECROSIS OF JAW [None]
  - OSTEOARTHRITIS [None]
  - ANXIETY DISORDER [None]
  - TOOTH DISORDER [None]
  - PANIC ATTACK [None]
  - SPONDYLOLISTHESIS [None]
  - FRACTURE NONUNION [None]
  - HYPOTENSION [None]
  - TOOTH FRACTURE [None]
  - ROTATOR CUFF SYNDROME [None]
  - PERIODONTITIS [None]
  - COUGH [None]
  - DENTAL CARIES [None]
  - FOOT FRACTURE [None]
  - HAND FRACTURE [None]
  - BONE LOSS [None]
  - IMPAIRED HEALING [None]
  - INJURY [None]
  - SINUS DISORDER [None]
  - PARKINSON'S DISEASE [None]
  - INTERVERTEBRAL DISC DEGENERATION [None]
  - FOOT DEFORMITY [None]
  - ORAL HERPES [None]
  - OSTEOMYELITIS [None]
  - TOOTH ABSCESS [None]
